FAERS Safety Report 25789486 (Version 2)
Quarter: 2025Q4

REPORT INFORMATION
  Report Type: Spontaneous
  Country: US (occurrence: US)
  Receive Date: 20250911
  Receipt Date: 20251208
  Transmission Date: 20260117
  Serious: Yes (Other)
  Sender: BRISTOL-MYERS SQUIBB COMPANY
  Company Number: US-BRISTOL-MYERS SQUIBB COMPANY-2025-124113

PATIENT
  Age: 68 Year
  Sex: Male

DRUGS (4)
  1. IPILIMUMAB [Suspect]
     Active Substance: IPILIMUMAB
     Indication: Hepatocellular carcinoma
     Dosage: CYCLE 3
  2. IPILIMUMAB [Suspect]
     Active Substance: IPILIMUMAB
     Indication: Metabolic dysfunction-associated steatohepatitis
  3. NIVOLUMAB [Suspect]
     Active Substance: NIVOLUMAB
     Indication: Hepatocellular carcinoma
     Dosage: CYCLE 3
  4. NIVOLUMAB [Suspect]
     Active Substance: NIVOLUMAB
     Indication: Metabolic dysfunction-associated steatohepatitis

REACTIONS (1)
  - Immune-mediated hepatic disorder [Recovered/Resolved]
